FAERS Safety Report 4438977-0 (Version None)
Quarter: 2004Q3

REPORT INFORMATION
  Report Type: 
  Country: None (occurrence: None)
  Receive Date: 20040830
  Receipt Date: 20040817
  Transmission Date: 20050211
  Serious: Yes (Life-Threatening, Hospitalization, Other)
  Sender: FDA-Public Use
  Company Number: 2004016551

PATIENT
  Age: 8 Year
  Sex: Female

DRUGS (5)
  1. ATARAX [Suspect]
     Indication: ANGIONEUROTIC OEDEMA
     Dosage: 5 ML, ORAL
     Route: 048
     Dates: start: 20001216
  2. ARNICA MONTANA (ARNICA MONTANA) [Concomitant]
  3. PHENYLTOLOXAMINE CITRATE) (PHENYLTOLOXAMINE CITRATE) [Concomitant]
  4. LORATADINE [Concomitant]
  5. CETIRIZINE HCL [Concomitant]

REACTIONS (18)
  - ABDOMINAL PAIN [None]
  - AGITATION [None]
  - ANGER [None]
  - ANGIONEUROTIC OEDEMA [None]
  - BLOOD PRESSURE DECREASED [None]
  - BRADYCARDIA [None]
  - DRUG HYPERSENSITIVITY [None]
  - FALL [None]
  - FEELING ABNORMAL [None]
  - FEELING HOT [None]
  - HYPOVOLAEMIA [None]
  - LOSS OF CONSCIOUSNESS [None]
  - MALAISE [None]
  - MYDRIASIS [None]
  - NODAL RHYTHM [None]
  - SYNCOPE VASOVAGAL [None]
  - URTICARIA [None]
  - VISION BLURRED [None]
